FAERS Safety Report 9742449 (Version 1)
Quarter: 2013Q4

REPORT INFORMATION
  Report Type: Spontaneous
  Country: US (occurrence: US)
  Receive Date: 20131210
  Receipt Date: 20131210
  Transmission Date: 20140711
  Serious: Yes (Hospitalization, Other)
  Sender: FDA-Public Use
  Company Number: US-BAXTER-2013BAX048217

PATIENT
  Sex: Male

DRUGS (2)
  1. DIANEAL PD2 [Suspect]
     Indication: RENAL FAILURE CHRONIC
     Route: 033
     Dates: start: 2013, end: 201307
  2. DIANEAL PD2 [Suspect]
     Route: 033
     Dates: start: 2013, end: 201307

REACTIONS (5)
  - Convulsion [Recovering/Resolving]
  - Inguinal hernia [Not Recovered/Not Resolved]
  - Electrolyte imbalance [Recovered/Resolved]
  - Brain oedema [Recovering/Resolving]
  - Hypertension [Recovered/Resolved]
